FAERS Safety Report 7252202-7 (Version None)
Quarter: 2011Q1

REPORT INFORMATION
  Report Type: 
  Country: None (occurrence: None)
  Receive Date: 20110129
  Receipt Date: 20100330
  Transmission Date: 20110831
  Serious: No
  Sender: FDA-Public Use
  Company Number: US-ABBOTT-10P-163-0636359-00

PATIENT
  Sex: Female

DRUGS (3)
  1. DOVANEX [Concomitant]
     Indication: PSORIASIS
     Dosage: DAILY
     Route: 061
  2. HUMIRA [Suspect]
     Indication: PSORIASIS
     Route: 058
     Dates: start: 20090301, end: 20100201
  3. CLOBETASOL [Concomitant]
     Indication: PSORIASIS
     Dosage: DAILY
     Route: 061

REACTIONS (1)
  - PSORIASIS [None]
